FAERS Safety Report 12829404 (Version 1)
Quarter: 2016Q4

REPORT INFORMATION
  Report Type: Spontaneous
  Country: US (occurrence: US)
  Receive Date: 20161007
  Receipt Date: 20161007
  Transmission Date: 20170207
  Serious: No
  Sender: FDA-Public Use
  Company Number: US-SA-2016SA054671

PATIENT
  Age: 61 Year
  Sex: Female

DRUGS (19)
  1. AUBAGIO [Suspect]
     Active Substance: TERIFLUNOMIDE
     Indication: MULTIPLE SCLEROSIS
     Route: 048
     Dates: start: 201604
  2. PROGESTERONE. [Concomitant]
     Active Substance: PROGESTERONE
  3. BETASERON [Concomitant]
     Active Substance: INTERFERON BETA-1B
  4. TOPIRAMATE. [Concomitant]
     Active Substance: TOPIRAMATE
  5. DULOXETINE. [Concomitant]
     Active Substance: DULOXETINE
  6. LEVOTHYROXINE. [Concomitant]
     Active Substance: LEVOTHYROXINE
  7. DYMISTA [Concomitant]
     Active Substance: AZELASTINE HYDROCHLORIDE\FLUTICASONE PROPIONATE
  8. FENOFIBRATE. [Concomitant]
     Active Substance: FENOFIBRATE
  9. PAZEO [Concomitant]
     Active Substance: OLOPATADINE HYDROCHLORIDE
  10. XUZAL [Concomitant]
     Active Substance: LEVOCETIRIZINE
  11. OMEPRAZOLE. [Concomitant]
     Active Substance: OMEPRAZOLE
  12. AUBAGIO [Suspect]
     Active Substance: TERIFLUNOMIDE
     Indication: MULTIPLE SCLEROSIS
     Route: 048
     Dates: start: 201604
  13. LEVOCETIRIZINE [Concomitant]
     Active Substance: LEVOCETIRIZINE
  14. LYRICA [Concomitant]
     Active Substance: PREGABALIN
  15. LOTEMAX [Concomitant]
     Active Substance: LOTEPREDNOL ETABONATE
  16. PREMARIN [Concomitant]
     Active Substance: ESTROGENS, CONJUGATED
  17. CITALOPRAM [Concomitant]
     Active Substance: CITALOPRAM HYDROBROMIDE
  18. AUBAGIO [Suspect]
     Active Substance: TERIFLUNOMIDE
     Indication: MULTIPLE SCLEROSIS
     Route: 048
     Dates: start: 20160223
  19. TRICOR [Concomitant]
     Active Substance: FENOFIBRATE

REACTIONS (3)
  - Paraesthesia [Unknown]
  - Neuropathy peripheral [Unknown]
  - Headache [Unknown]

NARRATIVE: CASE EVENT DATE: 2016
